FAERS Safety Report 8097535-X (Version None)
Quarter: 2012Q1

REPORT INFORMATION
  Report Type: 
  Country: None (occurrence: None)
  Receive Date: 20120131
  Receipt Date: 20120125
  Transmission Date: 20120608
  Serious: Yes (Other)
  Sender: FDA-Public Use
  Company Number: US-PFIZER INC-2012002866

PATIENT
  Sex: Female
  Weight: 70.9 kg

DRUGS (10)
  1. PERFOROMIST [Concomitant]
     Indication: CHRONIC OBSTRUCTIVE PULMONARY DISEASE
     Dosage: UNK
  2. LEVOXYL [Concomitant]
     Indication: HYPOTHYROIDISM
     Dosage: .05 MG, UNK
  3. CLONAZEPAM [Concomitant]
     Indication: ANXIETY
     Dosage: UNK
  4. PROZAC [Concomitant]
     Indication: DEPRESSION
     Dosage: UNK
  5. XANAX [Concomitant]
     Indication: PANIC ATTACK
     Dosage: 0.5 MG, AS NEEDED FOR CALM ME DOWN WHEN GET NERVOUS
  6. SPIRIVA [Concomitant]
     Indication: CHRONIC OBSTRUCTIVE PULMONARY DISEASE
     Dosage: 18 UG, ONCE IN MORNING
  7. BUDESONIDE [Concomitant]
     Indication: CHRONIC OBSTRUCTIVE PULMONARY DISEASE
     Dosage: UNK
  8. CHANTIX [Suspect]
     Indication: SMOKING CESSATION THERAPY
     Dosage: 0.5 MG, 1X/DAY
     Route: 048
     Dates: start: 20110201, end: 20110703
  9. MORPHINE [Concomitant]
     Indication: PAIN
     Dosage: UNK
  10. SOMA [Concomitant]
     Indication: MUSCLE SPASMS
     Dosage: UNK

REACTIONS (2)
  - ANAEMIA [None]
  - DYSPNOEA [None]
